FAERS Safety Report 14185028 (Version 1)
Quarter: 2017Q4

REPORT INFORMATION
  Report Type: Spontaneous
  Country: US (occurrence: US)
  Receive Date: 20171114
  Receipt Date: 20171114
  Transmission Date: 20180321
  Serious: No
  Sender: FDA-Public Use
  Company Number: US-BRISTOL-MYERS SQUIBB COMPANY-BMS-2017-099750

PATIENT
  Sex: Female

DRUGS (1)
  1. COUMADIN [Suspect]
     Active Substance: WARFARIN SODIUM
     Indication: EHLERS-DANLOS SYNDROME
     Dosage: ZERO
     Route: 065

REACTIONS (4)
  - Product use in unapproved indication [Unknown]
  - Condition aggravated [Unknown]
  - Inflammation [Unknown]
  - Rotator cuff syndrome [Unknown]
